FAERS Safety Report 4338592-3 (Version None)
Quarter: 2004Q2

REPORT INFORMATION
  Report Type: 
  Country: None (occurrence: None)
  Receive Date: 20040409
  Receipt Date: 20040329
  Transmission Date: 20050107
  Serious: No
  Sender: FDA-Public Use
  Company Number: 04P-087-0254396-00

PATIENT
  Age: 78 Year
  Sex: Female
  Weight: 65 kg

DRUGS (12)
  1. SEVOFLURANE [Suspect]
     Indication: ANAESTHESIA
     Dosage: INHALATION
     Route: 055
     Dates: start: 20030402, end: 20030402
  2. NITROUS OXIDE [Suspect]
     Indication: ANAESTHESIA
     Dosage: 67 %, INHALATION
     Dates: start: 20030402, end: 20030402
  3. PROPOFOL [Concomitant]
  4. LIDOCAINE HYDROCHLORIDE [Concomitant]
  5. FENTANYL CITRATE [Concomitant]
  6. VECURONIUM BROMIDE [Concomitant]
  7. FLURBIPROFEN AXETIL [Concomitant]
  8. HEPARIN [Concomitant]
  9. DIAZEPAM [Concomitant]
  10. HYPOTENSIVE DRUG [Concomitant]
  11. CRYSTAL SOLUTION [Concomitant]
  12. COLLOID SOLUTION [Concomitant]

REACTIONS (5)
  - ANAESTHETIC COMPLICATION [None]
  - BLOOD PRESSURE INCREASED [None]
  - BRADYCARDIA [None]
  - COUGH [None]
  - PULMONARY CONGESTION [None]
